FAERS Safety Report 25648760 (Version 2)
Quarter: 2025Q3

REPORT INFORMATION
  Report Type: Report from Study
  Country: US (occurrence: US)
  Receive Date: 20250806
  Receipt Date: 20250902
  Transmission Date: 20251021
  Serious: No
  Sender: TAKEDA
  Company Number: US-TAKEDA-2024TUS022557

PATIENT
  Age: 18 Year
  Sex: Female
  Weight: 99 kg

DRUGS (25)
  1. HUMAN IMMUNOGLOBULIN G\HYALURONIDASE RECOMBINANT HUMAN [Suspect]
     Active Substance: HUMAN IMMUNOGLOBULIN G\HYALURONIDASE (HUMAN RECOMBINANT)
     Indication: Immunodeficiency common variable
     Dosage: 42.5 GRAM, Q4WEEKS
  2. HUMAN IMMUNOGLOBULIN G\HYALURONIDASE RECOMBINANT HUMAN [Suspect]
     Active Substance: HUMAN IMMUNOGLOBULIN G\HYALURONIDASE (HUMAN RECOMBINANT)
     Dosage: 42.5 GRAM, Q4WEEKS
  3. HUMAN IMMUNOGLOBULIN G\HYALURONIDASE RECOMBINANT HUMAN [Suspect]
     Active Substance: HUMAN IMMUNOGLOBULIN G\HYALURONIDASE (HUMAN RECOMBINANT)
     Dosage: 40 GRAM, Q4WEEKS
  4. DIPHENHYDRAMINE HYDROCHLORIDE [Concomitant]
     Active Substance: DIPHENHYDRAMINE HYDROCHLORIDE
  5. SINGULAIR [Concomitant]
     Active Substance: MONTELUKAST SODIUM
  6. ZYRTEC [Concomitant]
     Active Substance: CETIRIZINE HYDROCHLORIDE
  7. ALMOTRIPTAN MALATE [Concomitant]
     Active Substance: ALMOTRIPTAN MALATE
  8. OMEPRAZOLE [Concomitant]
     Active Substance: OMEPRAZOLE
  9. FLUTICASONE PROPIONATE [Concomitant]
     Active Substance: FLUTICASONE PROPIONATE
  10. QVAR REDIHALER [Concomitant]
     Active Substance: BECLOMETHASONE DIPROPIONATE
  11. PROAIR HFA [Concomitant]
     Active Substance: ALBUTEROL SULFATE
  12. BEKYREE [Concomitant]
     Active Substance: DESOGESTREL\ETHINYL ESTRADIOL
  13. EPINEPHRINE [Concomitant]
     Active Substance: EPINEPHRINE
  14. ACETAMINOPHEN [Concomitant]
     Active Substance: ACETAMINOPHEN
  15. SODIUM CHLORIDE [Concomitant]
     Active Substance: SODIUM CHLORIDE
  16. VITAMIN D [Concomitant]
     Active Substance: VITAMIN D NOS
  17. KEPPRA [Concomitant]
     Active Substance: LEVETIRACETAM
  18. ABILIFY [Concomitant]
     Active Substance: ARIPIPRAZOLE
  19. LIDOCAINE AND PRILOCAINE [Concomitant]
     Active Substance: LIDOCAINE\PRILOCAINE
  20. LEVOTHYROXINE SODIUM [Concomitant]
     Active Substance: LEVOTHYROXINE SODIUM
  21. IRON [Concomitant]
     Active Substance: IRON
  22. PROMETHAZINE HYDROCHLORIDE [Concomitant]
     Active Substance: PROMETHAZINE HYDROCHLORIDE
  23. VITAMIN B [Concomitant]
     Active Substance: VITAMIN B
  24. MIRENA [Concomitant]
     Active Substance: LEVONORGESTREL
  25. NAPROXEN [Concomitant]
     Active Substance: NAPROXEN

REACTIONS (8)
  - Allergy to immunoglobulin therapy [Unknown]
  - Bronchitis [Unknown]
  - Sinusitis [Unknown]
  - Product use issue [Unknown]
  - Product dose omission issue [Unknown]
  - Dizziness [Unknown]
  - Pruritus [Recovered/Resolved]
  - Infusion site pruritus [Unknown]

NARRATIVE: CASE EVENT DATE: 20240413
